FAERS Safety Report 9037178 (Version 1)
Quarter: 2013Q1

REPORT INFORMATION
  Report Type: Spontaneous
  Country: US (occurrence: None)
  Receive Date: 20130123
  Receipt Date: 20130123
  Transmission Date: 20140127
  Serious: No
  Sender: FDA-Public Use
  Company Number: None

PATIENT
  Age: 56 Year
  Sex: Male
  Weight: 104.33 kg

DRUGS (1)
  1. MONTELUKAST [Suspect]
     Indication: BRONCHOSPASM
     Route: 048
     Dates: start: 20130109, end: 20130118

REACTIONS (4)
  - Dysgeusia [None]
  - Product odour abnormal [None]
  - Product substitution issue [None]
  - Dyspnoea [None]
